FAERS Safety Report 7792042-3 (Version None)
Quarter: 2011Q3

REPORT INFORMATION
  Report Type: 
  Country: None (occurrence: None)
  Receive Date: 20110930
  Receipt Date: 20110930
  Transmission Date: 20111222
  Serious: Yes (Disabling)
  Sender: FDA-Public Use
  Company Number: None

PATIENT
  Age: 78 Year
  Sex: Male
  Weight: 80.7403 kg

DRUGS (1)
  1. DALIRESP [Suspect]
     Indication: LUNG DISORDER
     Dosage: ONE DAILY ORAL
     Route: 048
     Dates: start: 20110701, end: 20110801

REACTIONS (5)
  - VISION BLURRED [None]
  - TREMOR [None]
  - NAUSEA [None]
  - DIZZINESS [None]
  - INSOMNIA [None]
